FAERS Safety Report 7040439-1 (Version None)
Quarter: 2010Q4

REPORT INFORMATION
  Report Type: 
  Country: None (occurrence: None)
  Receive Date: 20101012
  Receipt Date: 20101007
  Transmission Date: 20110411
  Serious: Yes (Hospitalization)
  Sender: FDA-Public Use
  Company Number: FR-MERCK-1010FRA00025

PATIENT
  Age: 54 Year
  Sex: Male

DRUGS (10)
  1. ZETIA [Suspect]
     Indication: DYSLIPIDAEMIA
     Route: 048
  2. COLCHICINE AND OPIUM, POWDERED AND TIEMONIUM METHYLSULFATE [Suspect]
     Indication: GOUT
     Route: 048
     Dates: start: 20100401, end: 20100401
  3. COLCHICINE AND OPIUM, POWDERED AND TIEMONIUM METHYLSULFATE [Suspect]
     Route: 048
     Dates: start: 20100426, end: 20100528
  4. ALLOPURINOL [Suspect]
     Indication: GOUT
     Route: 048
     Dates: start: 20100519, end: 20100528
  5. FLUVASTATIN SODIUM [Suspect]
     Route: 048
  6. BISOPROLOL FUMARATE [Concomitant]
     Route: 065
  7. FUROSEMIDE [Concomitant]
     Route: 065
  8. ASPIRIN LYSINE [Concomitant]
     Route: 065
  9. FLUINDIONE [Concomitant]
     Route: 048
  10. LEVOTHYROXINE SODIUM [Concomitant]
     Route: 048

REACTIONS (5)
  - DRUG INTERACTION [None]
  - EYELID OEDEMA [None]
  - PALMAR ERYTHEMA [None]
  - PURPURA [None]
  - RHABDOMYOLYSIS [None]
